FAERS Safety Report 6682425-7 (Version None)
Quarter: 2010Q2

REPORT INFORMATION
  Report Type: 
  Country: None (occurrence: None)
  Receive Date: 20100414
  Receipt Date: 20100414
  Transmission Date: 20101027
  Serious: Yes (Other)
  Sender: FDA-Public Use
  Company Number: None

PATIENT
  Sex: Female
  Weight: 99.1 kg

DRUGS (1)
  1. AVANDIA [Suspect]
     Indication: TYPE 2 DIABETES MELLITUS
     Dosage: 8MG DAILY ORAL
     Route: 048
     Dates: start: 20030101, end: 20040801

REACTIONS (5)
  - ABDOMINAL DISTENSION [None]
  - FLUID RETENTION [None]
  - GASTROOESOPHAGEAL REFLUX DISEASE [None]
  - IMPAIRED GASTRIC EMPTYING [None]
  - WEIGHT INCREASED [None]
